FAERS Safety Report 5220977-4 (Version None)
Quarter: 2007Q1

REPORT INFORMATION
  Report Type: 
  Country: None (occurrence: None)
  Receive Date: 20070123
  Receipt Date: 20070111
  Transmission Date: 20070707
  Serious: Yes (Death, Hospitalization)
  Sender: FDA-Public Use
  Company Number: 2006-02624

PATIENT
  Age: 71 Year
  Sex: Male
  Weight: 99 kg

DRUGS (2)
  1. VELCADE [Suspect]
     Indication: MYELODYSPLASTIC SYNDROME
     Dosage: 3.30 MG, INTRAVENOUS
     Route: 042
     Dates: start: 20061002, end: 20061016
  2. CYTARABINE [Suspect]
     Indication: MYELODYSPLASTIC SYNDROME
     Dosage: 44.00 MG, SUBCUTANEOUS
     Route: 058
     Dates: start: 20061002, end: 20061016

REACTIONS (11)
  - ACUTE PULMONARY OEDEMA [None]
  - ADHESION [None]
  - BRONCHOPULMONARY ASPERGILLOSIS [None]
  - HILAR LYMPHADENOPATHY [None]
  - HYPOTENSION [None]
  - ILEUS PARALYTIC [None]
  - INTESTINAL OBSTRUCTION [None]
  - RENAL FAILURE ACUTE [None]
  - RESPIRATORY DISORDER [None]
  - SEPTIC SHOCK [None]
  - STAPHYLOCOCCAL BACTERAEMIA [None]
